FAERS Safety Report 5758497-0 (Version None)
Quarter: 2008Q2

REPORT INFORMATION
  Report Type: 
  Country: None (occurrence: None)
  Receive Date: 20080604
  Receipt Date: 20080523
  Transmission Date: 20081010
  Serious: Yes (Other)
  Sender: FDA-Public Use
  Company Number: A0717322A

PATIENT
  Age: 56 Year
  Sex: Female

DRUGS (6)
  1. VALTREX [Suspect]
     Indication: GENITAL HERPES
     Dosage: 500MG TWICE PER DAY
     Route: 048
     Dates: start: 20080320, end: 20080430
  2. EMSAM [Suspect]
     Indication: DEPRESSION
     Route: 062
  3. ALCOHOL [Suspect]
     Route: 048
  4. SYNTHROID [Concomitant]
  5. AMBIEN [Concomitant]
  6. AMOXICILLIN [Concomitant]

REACTIONS (10)
  - ADVERSE EVENT [None]
  - ALCOHOL USE [None]
  - ATAXIA [None]
  - CONFUSIONAL STATE [None]
  - COORDINATION ABNORMAL [None]
  - DEPRESSED LEVEL OF CONSCIOUSNESS [None]
  - DRUG INTERACTION [None]
  - DYSARTHRIA [None]
  - GAIT DISTURBANCE [None]
  - HYPERSENSITIVITY [None]
